FAERS Safety Report 22259516 (Version 2)
Quarter: 2023Q2

REPORT INFORMATION
  Report Type: Report from Study
  Country: US (occurrence: US)
  Receive Date: 20230427
  Receipt Date: 20230502
  Transmission Date: 20230722
  Serious: No
  Sender: FDA-Public Use
  Company Number: US-002147023-NVSC2023US094172

PATIENT
  Sex: Male

DRUGS (1)
  1. ENTRESTO [Suspect]
     Active Substance: SACUBITRIL\VALSARTAN
     Indication: Cardiac failure congestive
     Dosage: UNK (DID NOT RECALL SPECIFIC DATE)
     Route: 065
     Dates: start: 2022

REACTIONS (2)
  - COVID-19 [Recovered/Resolved]
  - Cough [Not Recovered/Not Resolved]
